FAERS Safety Report 8014245-5 (Version None)
Quarter: 2011Q4

REPORT INFORMATION
  Report Type: 
  Country: None (occurrence: None)
  Receive Date: 20111229
  Receipt Date: 20111221
  Transmission Date: 20120403
  Serious: Yes (Other)
  Sender: FDA-Public Use
  Company Number: US-GLAXOSMITHKLINE-A0959360A

PATIENT
  Sex: Female

DRUGS (2)
  1. LAMOTRIGINE [Suspect]
     Indication: MOOD SWINGS
     Dosage: 200MG UNKNOWN
     Route: 065
     Dates: start: 20090101
  2. LITHIUM CARBONATE [Concomitant]
     Indication: MOOD SWINGS

REACTIONS (7)
  - MENTAL IMPAIRMENT [None]
  - THERAPEUTIC RESPONSE UNEXPECTED WITH DRUG SUBSTITUTION [None]
  - BIPOLAR I DISORDER [None]
  - PSYCHOTIC DISORDER [None]
  - DELUSION [None]
  - HIP FRACTURE [None]
  - MANIA [None]
